FAERS Safety Report 4401839-9 (Version None)
Quarter: 2004Q3

REPORT INFORMATION
  Report Type: 
  Country: None (occurrence: None)
  Receive Date: 20040714
  Receipt Date: 20040701
  Transmission Date: 20050211
  Serious: Yes (Hospitalization, Other)
  Sender: FDA-Public Use
  Company Number: 2004037107

PATIENT
  Age: 64 Year
  Sex: Male
  Weight: 75.2971 kg

DRUGS (6)
  1. LIPITOR [Suspect]
     Indication: BLOOD CHOLESTEROL INCREASED
     Dosage: 80 MG (80 MG, 1 IN 1 D), ORAL
     Route: 048
     Dates: start: 20040507, end: 20040527
  2. LIPITOR [Suspect]
     Indication: CORONARY ARTERY DISEASE
     Dosage: 80 MG (80 MG, 1 IN 1 D), ORAL
     Route: 048
     Dates: start: 20040507, end: 20040527
  3. LIPITOR [Suspect]
     Indication: PROPHYLAXIS
     Dosage: 80 MG (80 MG, 1 IN 1 D), ORAL
     Route: 048
     Dates: start: 20040507, end: 20040527
  4. DILTIAZEM HYDROCHLORIDE [Suspect]
     Indication: ILL-DEFINED DISORDER
     Dates: start: 20040401
  5. NICOTINIC ACID (NICOTINIC SCID) [Concomitant]
  6. ACETYLSALICYLIC ACID SRT [Concomitant]

REACTIONS (7)
  - ASTHENIA [None]
  - EOSINOPHILIA [None]
  - FATIGUE [None]
  - HEADACHE [None]
  - JAUNDICE CHOLESTATIC [None]
  - LIVER DISORDER [None]
  - PYREXIA [None]
